FAERS Safety Report 11389796 (Version 2)
Quarter: 2015Q3

REPORT INFORMATION
  Report Type: Spontaneous
  Country: US (occurrence: US)
  Receive Date: 20150817
  Receipt Date: 20150830
  Transmission Date: 20151125
  Serious: Yes (Other)
  Sender: FDA-Public Use
  Company Number: US-AMGEN-USASP2015081822

PATIENT
  Age: 71 Year
  Sex: Female
  Weight: 72.7 kg

DRUGS (7)
  1. PROBIOTIC                          /06395501/ [Concomitant]
     Dosage: 1 DF, QD
     Route: 048
  2. TRIAMCINOLONE [Concomitant]
     Active Substance: TRIAMCINOLONE
     Dosage: 0.1 %, BID
     Route: 061
  3. EPA NATURAL FISH OIL 1000MG [Concomitant]
     Dosage: 1000 MG, QD
     Route: 048
  4. MIRAPEX [Concomitant]
     Active Substance: PRAMIPEXOLE DIHYDROCHLORIDE
     Dosage: 1.5 MG, QD
     Route: 048
  5. KERYDIN [Concomitant]
     Active Substance: TAVABOROLE
     Dosage: 5 %, QD
     Route: 061
  6. MAGNESIUM OXIDE. [Concomitant]
     Active Substance: MAGNESIUM OXIDE
     Dosage: 500 MG, QID
     Route: 048
  7. PROLIA [Suspect]
     Active Substance: DENOSUMAB
     Indication: OSTEOPOROSIS
     Dosage: 60 MG, Q6MO
     Route: 058
     Dates: start: 20150415, end: 20150415

REACTIONS (2)
  - Onychomadesis [Recovering/Resolving]
  - Psoriatic arthropathy [Unknown]
